FAERS Safety Report 19431084 (Version 1)
Quarter: 2021Q2

REPORT INFORMATION
  Report Type: Spontaneous
  Country: US (occurrence: US)
  Receive Date: 20210618
  Receipt Date: 20210618
  Transmission Date: 20210717
  Serious: No
  Sender: FDA-Public Use
  Company Number: US-ROCHE-2754799

PATIENT
  Sex: Female
  Weight: 81.72 kg

DRUGS (9)
  1. ACTEMRA [Suspect]
     Active Substance: TOCILIZUMAB
  2. TOPIRAMATE. [Concomitant]
     Active Substance: TOPIRAMATE
     Route: 048
     Dates: start: 20200624
  3. ACTEMRA [Suspect]
     Active Substance: TOCILIZUMAB
     Indication: GIANT CELL ARTERITIS
     Route: 058
     Dates: start: 20200625
  4. ACTEMRA [Suspect]
     Active Substance: TOCILIZUMAB
  5. ACTEMRA [Suspect]
     Active Substance: TOCILIZUMAB
     Indication: POLYMYALGIA RHEUMATICA
  6. PANTOPRAZOLE [Concomitant]
     Active Substance: PANTOPRAZOLE
     Route: 048
     Dates: start: 20200624
  7. CITALOPRAM [Concomitant]
     Active Substance: CITALOPRAM HYDROBROMIDE
     Route: 048
     Dates: start: 20200624
  8. PREDNISONE. [Concomitant]
     Active Substance: PREDNISONE
     Route: 048
     Dates: start: 20200624
  9. PREMARIN [Concomitant]
     Active Substance: ESTROGENS, CONJUGATED
     Route: 048
     Dates: start: 20200624

REACTIONS (1)
  - COVID-19 [Unknown]
